FAERS Safety Report 4931983-9 (Version None)
Quarter: 2006Q1

REPORT INFORMATION
  Report Type: 
  Country: None (occurrence: None)
  Receive Date: 20060303
  Receipt Date: 20060228
  Transmission Date: 20060701
  Serious: Yes (Hospitalization)
  Sender: FDA-Public Use
  Company Number: MX-GLAXOSMITHKLINE-A0595799A

PATIENT
  Age: 21 Year
  Sex: Female

DRUGS (2)
  1. ZOFRAN [Suspect]
     Indication: VOMITING
     Route: 042
     Dates: start: 20060203, end: 20060203
  2. VINCRISTINE [Concomitant]
     Route: 042

REACTIONS (2)
  - PRURITUS [None]
  - RASH PAPULAR [None]
